FAERS Safety Report 11545678 (Version 2)
Quarter: 2015Q4

REPORT INFORMATION
  Report Type: Report from Study
  Country: CA (occurrence: CA)
  Receive Date: 20150924
  Receipt Date: 20151005
  Transmission Date: 20160304
  Serious: Yes (Other)
  Sender: FDA-Public Use
  Company Number: CA-ABBVIE-15K-028-1464014-00

PATIENT
  Sex: Female
  Weight: 86.26 kg

DRUGS (2)
  1. HUMIRA [Suspect]
     Active Substance: ADALIMUMAB
     Route: 058
     Dates: start: 20150924
  2. HUMIRA [Suspect]
     Active Substance: ADALIMUMAB
     Indication: PSORIATIC ARTHROPATHY
     Route: 058
     Dates: start: 20150303, end: 20150827

REACTIONS (4)
  - Rotator cuff syndrome [Recovering/Resolving]
  - Procedural pain [Not Recovered/Not Resolved]
  - Tendon disorder [Recovering/Resolving]
  - Calcinosis [Recovering/Resolving]

NARRATIVE: CASE EVENT DATE: 2015
